FAERS Safety Report 9721445 (Version 1)
Quarter: 2013Q4

REPORT INFORMATION
  Report Type: Report from Study
  Country: US (occurrence: US)
  Receive Date: 20131129
  Receipt Date: 20131129
  Transmission Date: 20140711
  Serious: Yes (Hospitalization)
  Sender: FDA-Public Use
  Company Number: US-ASTRAZENECA-2013SE86175

PATIENT
  Age: 66 Year
  Sex: Female
  Weight: 81.6 kg

DRUGS (5)
  1. SYMBICORT [Suspect]
     Indication: ASTHMA
     Dosage: 160/4.5 MCG, TWO PUFFS, BID
     Route: 055
     Dates: start: 2010, end: 201309
  2. SLECAINIDE [Concomitant]
     Indication: ATRIAL FIBRILLATION
  3. COREG [Concomitant]
     Indication: HYPERTENSION
  4. ENALAPRIL [Concomitant]
     Indication: HYPERTENSION
  5. ALBUTEROL NEBULIZER [Concomitant]
     Indication: ASTHMA

REACTIONS (4)
  - Cerebrovascular accident [Unknown]
  - Atrial fibrillation [Unknown]
  - Wheezing [Not Recovered/Not Resolved]
  - Intentional drug misuse [Not Recovered/Not Resolved]
